FAERS Safety Report 23443927 (Version 1)
Quarter: 2024Q1

REPORT INFORMATION
  Report Type: Spontaneous
  Country: HR (occurrence: HR)
  Receive Date: 20240125
  Receipt Date: 20240125
  Transmission Date: 20240410
  Serious: Yes (Hospitalization, Other)
  Sender: FDA-Public Use
  Company Number: HR-PFIZER INC-PV202400008707

PATIENT
  Age: 47 Year
  Sex: Female

DRUGS (1)
  1. SULFASALAZINE [Suspect]
     Active Substance: SULFASALAZINE
     Dosage: (2X2 TBL)
     Dates: start: 20201120

REACTIONS (7)
  - Drug reaction with eosinophilia and systemic symptoms [Recovered/Resolved]
  - Bradycardia [Recovered/Resolved]
  - Tricuspid valve incompetence [Recovered/Resolved]
  - Pleural effusion [Recovered/Resolved]
  - Embolic cerebral infarction [Unknown]
  - Mitral valve incompetence [Recovered/Resolved]
  - Hepatic lesion [Recovered/Resolved]

NARRATIVE: CASE EVENT DATE: 20201210
